FAERS Safety Report 23677357 (Version 1)
Quarter: 2024Q1

REPORT INFORMATION
  Report Type: Spontaneous
  Country: CA (occurrence: CA)
  Receive Date: 20240327
  Receipt Date: 20240327
  Transmission Date: 20240410
  Serious: Yes (Other)
  Sender: FDA-Public Use
  Company Number: CA-002147023-PHHY2014CA128928

PATIENT
  Age: 53 Year
  Sex: Female

DRUGS (29)
  1. CODEINE PHOSPHATE [Suspect]
     Active Substance: CODEINE PHOSPHATE
     Indication: Product used for unknown indication
     Dosage: UNK
     Route: 065
  2. DIOVAN [Suspect]
     Active Substance: VALSARTAN
     Indication: Product used for unknown indication
     Dosage: UNK
     Route: 048
  3. NAPROSYN [Suspect]
     Active Substance: NAPROXEN
     Indication: Back pain
     Dosage: UNK
     Route: 065
  4. NAPROSYN [Suspect]
     Active Substance: NAPROXEN
     Indication: Fall
  5. OMALIZUMAB [Suspect]
     Active Substance: OMALIZUMAB
     Dosage: 375 MG, BIW
     Route: 058
     Dates: start: 20190827
  6. OMALIZUMAB [Suspect]
     Active Substance: OMALIZUMAB
     Dosage: 375 MG, BIW
     Route: 058
     Dates: start: 20180717
  7. OMALIZUMAB [Suspect]
     Active Substance: OMALIZUMAB
     Dosage: 375 MG, BIW
     Route: 058
     Dates: start: 20180717
  8. OMALIZUMAB [Suspect]
     Active Substance: OMALIZUMAB
     Dosage: 375 MG, BIW
     Route: 058
     Dates: start: 20190827
  9. OMALIZUMAB [Suspect]
     Active Substance: OMALIZUMAB
     Dosage: 375 MG, BIW
     Route: 058
  10. OMALIZUMAB [Suspect]
     Active Substance: OMALIZUMAB
     Dosage: 375 MG, BIW
     Route: 058
  11. OMALIZUMAB [Suspect]
     Active Substance: OMALIZUMAB
     Dosage: 375 MG, BIW
     Route: 058
  12. OMALIZUMAB [Suspect]
     Active Substance: OMALIZUMAB
     Dosage: 375 MG, BIW
     Route: 058
  13. OMALIZUMAB [Suspect]
     Active Substance: OMALIZUMAB
     Dosage: UNK
     Route: 058
     Dates: start: 20161229
  14. OMALIZUMAB [Suspect]
     Active Substance: OMALIZUMAB
     Dosage: UNK
     Route: 058
     Dates: start: 20171219
  15. OMALIZUMAB [Suspect]
     Active Substance: OMALIZUMAB
     Dosage: UNK
     Route: 058
     Dates: start: 20171219
  16. OMALIZUMAB [Suspect]
     Active Substance: OMALIZUMAB
     Indication: Asthma
     Dosage: 375 MG, BIW
     Route: 058
     Dates: start: 20140911
  17. OMALIZUMAB [Suspect]
     Active Substance: OMALIZUMAB
     Dosage: 375 MG, BIW
     Route: 058
  18. OMALIZUMAB [Suspect]
     Active Substance: OMALIZUMAB
     Indication: Asthma
     Dosage: 375 MG, BIW
     Route: 058
     Dates: start: 20140911
  19. OMALIZUMAB [Suspect]
     Active Substance: OMALIZUMAB
     Dosage: 375 MG, BIW
     Route: 058
     Dates: start: 20190423
  20. OMALIZUMAB [Suspect]
     Active Substance: OMALIZUMAB
     Dosage: 375 MG, BIW
     Route: 058
  21. OMALIZUMAB [Suspect]
     Active Substance: OMALIZUMAB
     Dosage: UNK
     Route: 058
     Dates: start: 20140925
  22. OMALIZUMAB [Suspect]
     Active Substance: OMALIZUMAB
     Dosage: UNK
     Route: 058
     Dates: start: 20151105
  23. OMALIZUMAB [Suspect]
     Active Substance: OMALIZUMAB
     Dosage: UNK
     Route: 058
     Dates: start: 20151217
  24. OMALIZUMAB [Suspect]
     Active Substance: OMALIZUMAB
     Dosage: UNK
     Route: 058
     Dates: start: 20160825
  25. OMALIZUMAB [Suspect]
     Active Substance: OMALIZUMAB
     Dosage: UNK
     Route: 058
     Dates: start: 20180102
  26. OMALIZUMAB [Suspect]
     Active Substance: OMALIZUMAB
     Dosage: UNK
     Route: 058
     Dates: start: 201701
  27. ALVESCO [Concomitant]
     Active Substance: CICLESONIDE
     Indication: Product used for unknown indication
     Dosage: UNK
     Route: 065
  28. GLYCOPYRRONIUM\INDACATEROL [Concomitant]
     Active Substance: GLYCOPYRRONIUM\INDACATEROL
     Indication: Asthma
     Dosage: 1 DF, QD
     Route: 055
  29. VENTOLIN [Concomitant]
     Active Substance: ALBUTEROL SULFATE
     Indication: Product used for unknown indication
     Dosage: UNK
     Route: 065

REACTIONS (31)
  - Blood pressure systolic increased [Unknown]
  - Headache [Unknown]
  - Nausea [Unknown]
  - Dizziness [Unknown]
  - Diabetes mellitus [Unknown]
  - Drug hypersensitivity [Unknown]
  - Bronchitis [Recovering/Resolving]
  - Pyrexia [Unknown]
  - Cough [Not Recovered/Not Resolved]
  - Illness [Not Recovered/Not Resolved]
  - Oropharyngeal pain [Unknown]
  - Gastrointestinal disorder [Unknown]
  - Respiratory rate increased [Unknown]
  - Body temperature increased [Unknown]
  - Diarrhoea [Unknown]
  - Productive cough [Unknown]
  - Sputum discoloured [Unknown]
  - Influenza [Unknown]
  - Rotator cuff syndrome [Unknown]
  - Fatigue [Unknown]
  - Back pain [Unknown]
  - Fall [Unknown]
  - Chest pain [Unknown]
  - Pain in extremity [Unknown]
  - Injection site hypersensitivity [Unknown]
  - Injection site pain [Unknown]
  - Injection site hypoaesthesia [Unknown]
  - Injection site hyperaesthesia [Unknown]
  - Pain [Unknown]
  - Wrong technique in product usage process [Unknown]
  - Incorrect dose administered [Unknown]

NARRATIVE: CASE EVENT DATE: 20140925
